FAERS Safety Report 5716679-8 (Version None)
Quarter: 2008Q2

REPORT INFORMATION
  Report Type: 
  Country: None (occurrence: None)
  Receive Date: 20080424
  Receipt Date: 20070403
  Transmission Date: 20081010
  Serious: No
  Sender: FDA-Public Use
  Company Number: US-BAYER-200710431BWH

PATIENT
  Age: 54 Year
  Sex: Female

DRUGS (25)
  1. LEVITRA [Suspect]
     Indication: RAYNAUD'S PHENOMENON
     Dosage: TOTAL DAILY DOSE: 10 MG  UNIT DOSE: 10 MG
     Route: 048
     Dates: start: 20060201
  2. ALBUTEROL [Concomitant]
  3. ADVAIR HFA [Concomitant]
  4. TYLENOL (CAPLET) [Concomitant]
  5. CYMBALTA [Concomitant]
  6. EFFEXOR [Concomitant]
  7. FLEXERIL [Concomitant]
  8. FOLIC ACID [Concomitant]
  9. KADIAN [Concomitant]
  10. LACTIC ACID [Concomitant]
  11. LASIX [Concomitant]
     Route: 048
  12. LYRICA [Concomitant]
  13. LIDODERM [Concomitant]
     Route: 058
  14. LORTAB [Concomitant]
  15. METHOTREXATE [Concomitant]
  16. NORTRIPTYLINE HCL [Concomitant]
  17. ORGANIDIN [Concomitant]
  18. POTASSIUM CHLORIDE [Concomitant]
  19. SPIRIVA [Concomitant]
  20. TRAMADOL HCL [Concomitant]
  21. TRAZODONE HCL [Concomitant]
  22. ZAROXOLYN [Concomitant]
  23. VITAMIN D [Concomitant]
  24. ASCORBIC ACID [Concomitant]
  25. VITAMIN E [Concomitant]

REACTIONS (1)
  - RAYNAUD'S PHENOMENON [None]
